FAERS Safety Report 16596658 (Version 2)
Quarter: 2019Q3

REPORT INFORMATION
  Report Type: Report from Study
  Country: US (occurrence: US)
  Receive Date: 20190719
  Receipt Date: 20190925
  Transmission Date: 20191004
  Serious: Yes (Other)
  Sender: FDA-Public Use
  Company Number: US-BIOGEN-2019BI00744535

PATIENT
  Sex: Female

DRUGS (1)
  1. TYSABRI [Suspect]
     Active Substance: NATALIZUMAB
     Indication: MULTIPLE SCLEROSIS
     Route: 065
     Dates: start: 20130417

REACTIONS (8)
  - Urinary tract infection [Unknown]
  - Paraparesis [Unknown]
  - Hypoaesthesia [Unknown]
  - Pubis fracture [Unknown]
  - Fall [Recovered/Resolved]
  - Lumbar spinal stenosis [Unknown]
  - Gait disturbance [Unknown]
  - Spondylolisthesis [Unknown]
